FAERS Safety Report 7689851-8 (Version None)
Quarter: 2011Q3

REPORT INFORMATION
  Report Type: 
  Country: None (occurrence: None)
  Receive Date: 20110818
  Receipt Date: 20110812
  Transmission Date: 20111222
  Serious: Yes (Hospitalization)
  Sender: FDA-Public Use
  Company Number: US-BIOGENIDEC-2011BI011952

PATIENT
  Age: 56 Year
  Sex: Female

DRUGS (23)
  1. AVONEX [Suspect]
     Indication: MULTIPLE SCLEROSIS
     Route: 030
     Dates: start: 20030801
  2. LEVOTHYROXINE SODIUM [Concomitant]
  3. FUROSEMIDE [Concomitant]
     Indication: OEDEMA
  4. VITAMIN D [Concomitant]
  5. TOPIRAMATE [Concomitant]
  6. GEMFIBROZIL [Concomitant]
  7. AMANTADINE HCL [Concomitant]
  8. OXYCODONE/ACETAMINOPHEN [Concomitant]
  9. GABAPENTIN [Concomitant]
  10. SIMAVASTATIN [Concomitant]
  11. CARISOPRODOL [Concomitant]
  12. CLONAZEPAM [Concomitant]
  13. METOCLOPRAMIDE [Concomitant]
  14. MIRTAZAPINE [Concomitant]
  15. POTASSIUM CL ER [Concomitant]
  16. PROMETHAZINE [Concomitant]
  17. TIZANDINE HCL [Concomitant]
  18. SEROQUEL XR [Concomitant]
  19. AVONEX [Suspect]
     Route: 030
     Dates: start: 19990705, end: 20030701
  20. SPIRONOLACTONE [Concomitant]
  21. METFORMIN HCL [Concomitant]
  22. FLUOXETINE HYDROCHLORIDE [Concomitant]
  23. ALBUTEROL SULFATE AUTOHALER [Concomitant]

REACTIONS (1)
  - INTERVERTEBRAL DISC DISPLACEMENT [None]
